FAERS Safety Report 6912282-2 (Version None)
Quarter: 2010Q3

REPORT INFORMATION
  Report Type: 
  Country: None (occurrence: None)
  Receive Date: 20100806
  Receipt Date: 20080306
  Transmission Date: 20110219
  Serious: No
  Sender: FDA-Public Use
  Company Number: US-PFIZER INC-2008021122

PATIENT
  Sex: Male
  Weight: 81.818 kg

DRUGS (9)
  1. DETROL LA [Suspect]
     Dates: start: 20080201
  2. PLAVIX [Concomitant]
  3. ACETYLSALICYLIC ACID SRT [Concomitant]
  4. LIPITOR [Concomitant]
  5. ZINC [Concomitant]
  6. FISH OIL [Concomitant]
  7. VITAMIN A AND D [Concomitant]
  8. VITAMIN E [Concomitant]
  9. NORVASC [Concomitant]

REACTIONS (1)
  - CONSTIPATION [None]
